FAERS Safety Report 24152394 (Version 1)
Quarter: 2024Q3

REPORT INFORMATION
  Report Type: Spontaneous
  Country: US (occurrence: US)
  Receive Date: 20240730
  Receipt Date: 20240730
  Transmission Date: 20241017
  Serious: No
  Sender: GILEAD
  Company Number: US-GILEAD-2024-0682301

PATIENT
  Sex: Female
  Weight: 72.109 kg

DRUGS (2)
  1. EPCLUSA [Suspect]
     Active Substance: SOFOSBUVIR\VELPATASVIR
     Indication: Product used for unknown indication
     Dosage: UNK
     Route: 065
  2. DUPILUMAB [Concomitant]
     Active Substance: DUPILUMAB
     Dosage: UNK
     Route: 058

REACTIONS (2)
  - Liver disorder [Unknown]
  - Illness [Unknown]
